FAERS Safety Report 15665813 (Version 2)
Quarter: 2019Q2

REPORT INFORMATION
  Report Type: Report from Study
  Country: US (occurrence: US)
  Receive Date: 20181128
  Receipt Date: 20190408
  Transmission Date: 20190711
  Serious: Yes (Other)
  Sender: FDA-Public Use
  Company Number: PHEH2018US049437

PATIENT
  Sex: Male

DRUGS (1)
  1. ENTRESTO [Suspect]
     Active Substance: SACUBITRIL\VALSARTAN
     Indication: CARDIAC FAILURE
     Route: 048

REACTIONS (7)
  - Fatigue [Unknown]
  - Tunnel vision [Unknown]
  - Cardiac amyloidosis [Unknown]
  - Hypotension [Unknown]
  - Cough [Unknown]
  - Cardiac failure congestive [Unknown]
  - Visual field defect [Unknown]
